FAERS Safety Report 5341503-5 (Version None)
Quarter: 2007Q2

REPORT INFORMATION
  Report Type: 
  Country: None (occurrence: None)
  Receive Date: 20070601
  Receipt Date: 20070522
  Transmission Date: 20071010
  Serious: Yes (Hospitalization)
  Sender: FDA-Public Use
  Company Number: PHBS2007IT08681

PATIENT
  Age: 55 Year
  Sex: Male

DRUGS (1)
  1. CARBAMAZEPINE [Suspect]
     Indication: PARTIAL SEIZURES
     Dosage: 600 MG/DAY
     Route: 065

REACTIONS (3)
  - APHASIA [None]
  - CONGENITAL CEREBROVASCULAR ANOMALY [None]
  - STATUS EPILEPTICUS [None]
